FAERS Safety Report 18134110 (Version 6)
Quarter: 2025Q3

REPORT INFORMATION
  Report Type: Report from Study
  Country: CA (occurrence: CA)
  Receive Date: 20200811
  Receipt Date: 20250910
  Transmission Date: 20251021
  Serious: Yes (Hospitalization, Other)
  Sender: TAKEDA
  Company Number: CA-TAKEDA-2018TUS004379

PATIENT
  Age: 72 Year
  Sex: Male

DRUGS (14)
  1. VEDOLIZUMAB [Suspect]
     Active Substance: VEDOLIZUMAB
     Indication: Crohn^s disease
  2. VEDOLIZUMAB [Suspect]
     Active Substance: VEDOLIZUMAB
  3. VEDOLIZUMAB [Suspect]
     Active Substance: VEDOLIZUMAB
  4. VEDOLIZUMAB [Suspect]
     Active Substance: VEDOLIZUMAB
  5. VEDOLIZUMAB [Suspect]
     Active Substance: VEDOLIZUMAB
  6. SIMVASTATIN [Concomitant]
     Active Substance: SIMVASTATIN
  7. PERINDOPRIL [Concomitant]
     Active Substance: PERINDOPRIL
  8. SYNTHROID [Concomitant]
     Active Substance: LEVOTHYROXINE SODIUM
  9. WARFARIN [Concomitant]
     Active Substance: WARFARIN
  10. METFORMIN [Concomitant]
     Active Substance: METFORMIN HYDROCHLORIDE
  11. CARVEDILOL [Concomitant]
     Active Substance: CARVEDILOL
  12. XARELTO [Concomitant]
     Active Substance: RIVAROXABAN
  13. LASIX [Concomitant]
     Active Substance: FUROSEMIDE
  14. DIGOXIN [Concomitant]
     Active Substance: DIGOXIN

REACTIONS (4)
  - Intestinal obstruction [Unknown]
  - Abdominal pain [Recovered/Resolved]
  - Asthenia [Unknown]
  - Fatigue [Unknown]

NARRATIVE: CASE EVENT DATE: 20180212
